FAERS Safety Report 9648856 (Version 1)
Quarter: 2013Q4

REPORT INFORMATION
  Report Type: Spontaneous
  Country: US (occurrence: None)
  Receive Date: 20131025
  Receipt Date: 20131025
  Transmission Date: 20140711
  Serious: No
  Sender: FDA-Public Use
  Company Number: None

PATIENT
  Age: 24 Year
  Sex: Female
  Weight: 54.43 kg

DRUGS (1)
  1. MIRENA IUD [Suspect]
     Dates: start: 20101011, end: 20121017

REACTIONS (10)
  - Vulvovaginal pain [None]
  - Weight decreased [None]
  - Vulvovaginal pruritus [None]
  - Vulvovaginal burning sensation [None]
  - Bartholin^s cyst [None]
  - Vaginal haemorrhage [None]
  - Dyspareunia [None]
  - Abdominal distension [None]
  - Skin irritation [None]
  - Smear cervix abnormal [None]
